FAERS Safety Report 7740012-3 (Version None)
Quarter: 2011Q3

REPORT INFORMATION
  Report Type: 
  Country: None (occurrence: None)
  Receive Date: 20110906
  Receipt Date: 20110822
  Transmission Date: 20111222
  Serious: Yes (Other)
  Sender: FDA-Public Use
  Company Number: AUR-APL-2011-04749

PATIENT
  Sex: Female

DRUGS (1)
  1. GABAPENTIN [Suspect]
     Indication: PRODUCT USED FOR UNKNOWN INDICATION
     Dosage: 200 MG (100 MG,2 IN 1 D) : 400 MG (200 MG, 2 IN 1 D)

REACTIONS (5)
  - RENAL IMPAIRMENT [None]
  - BLOOD PRESSURE INCREASED [None]
  - MYASTHENIA GRAVIS [None]
  - EPIDERMAL GROWTH FACTOR RECEPTOR DECREASED [None]
  - CONDITION AGGRAVATED [None]
